FAERS Safety Report 8828716 (Version 2)
Quarter: 2012Q4

REPORT INFORMATION
  Report Type: Report from Study
  Country: DE (occurrence: DE)
  Receive Date: 20121008
  Receipt Date: 20121022
  Transmission Date: 20130627
  Serious: Yes (Hospitalization)
  Sender: FDA-Public Use
  Company Number: DE-VERTEX PHARMACEUTICAL INC.-2012-022456

PATIENT
  Age: 65 Year
  Sex: Female
  Weight: 53 kg

DRUGS (3)
  1. VX-950 [Suspect]
     Indication: HEPATITIS C
     Dosage: 2250 mg, UNK
     Dates: start: 20120615, end: 20120810
  2. COPEGUS [Suspect]
     Indication: HEPATITIS C
     Dosage: 200
     Route: 065
     Dates: start: 20120728, end: 20120810
  3. PEGASYS [Suspect]
     Indication: HEPATITIS C
     Dosage: 180
     Route: 058
     Dates: start: 20120615, end: 20120810

REACTIONS (2)
  - General physical health deterioration [Recovered/Resolved]
  - Nausea [Recovered/Resolved]
